FAERS Safety Report 14971753 (Version 1)
Quarter: 2018Q2

REPORT INFORMATION
  Report Type: Spontaneous
  Country: ES (occurrence: ES)
  Receive Date: 20180605
  Receipt Date: 20180605
  Transmission Date: 20180711
  Serious: Yes (Other)
  Sender: FDA-Public Use
  Company Number: ES-ALEXION PHARMACEUTICALS INC-A201806598

PATIENT
  Age: 44 Year
  Sex: Male

DRUGS (1)
  1. SOLIRIS [Suspect]
     Active Substance: ECULIZUMAB
     Indication: PAROXYSMAL NOCTURNAL HAEMOGLOBINURIA
     Route: 065

REACTIONS (5)
  - Drug ineffective [Unknown]
  - Myelodysplastic syndrome [Unknown]
  - Glomerular filtration rate decreased [Unknown]
  - Thrombocytopenia [Unknown]
  - Renal impairment [Unknown]
